FAERS Safety Report 17241757 (Version 1)
Quarter: 2020Q1

REPORT INFORMATION
  Report Type: Spontaneous
  Country: FR (occurrence: FR)
  Receive Date: 20200107
  Receipt Date: 20200107
  Transmission Date: 20200409
  Serious: Yes (Hospitalization, Other)
  Sender: FDA-Public Use
  Company Number: FR-PFIZER INC-2020001408

PATIENT
  Age: 30 Year
  Sex: Male
  Weight: 74 kg

DRUGS (8)
  1. NAVELBINE [Suspect]
     Active Substance: VINORELBINE TARTRATE
     Indication: HODGKIN^S DISEASE
     Dosage: UNK, (38.4 MG PER CURE)
     Route: 041
     Dates: start: 20191107, end: 20191114
  2. DACARBAZINE MEDAC [DACARBAZINE] [Suspect]
     Active Substance: DACARBAZINE
     Indication: HODGKIN^S DISEASE
     Dosage: UNK, (720 MG PER CURE)
     Route: 041
     Dates: start: 20190710, end: 20191024
  3. ADRIBLASTINE [Suspect]
     Active Substance: DOXORUBICIN
     Dosage: UNK (28.80 MG PER CURE)
     Route: 041
     Dates: start: 2019, end: 20191114
  4. ADRIBLASTINE [Suspect]
     Active Substance: DOXORUBICIN
     Indication: HODGKIN^S DISEASE
     Dosage: UNK, (48 MG PER CURE)
     Route: 041
     Dates: start: 20190710, end: 20191024
  5. ADCETRIS [Suspect]
     Active Substance: BRENTUXIMAB VEDOTIN
     Indication: HODGKIN^S DISEASE
     Dosage: UNK, (138.60 MG PER CURE)
     Route: 041
     Dates: start: 20191107, end: 20191114
  6. BLEOMYCINE BELLON [Suspect]
     Active Substance: BLEOMYCIN SULFATE
     Indication: HODGKIN^S DISEASE
     Dosage: UNK, (19.20 MG PER CURE)
     Route: 041
     Dates: start: 20190710, end: 20190923
  7. GEMCITABINE SANDOZ [Suspect]
     Active Substance: GEMCITABINE\GEMCITABINE HYDROCHLORIDE
     Indication: HODGKIN^S DISEASE
     Dosage: UNK, (1920 MG PER CURE)
     Route: 041
     Dates: start: 20191107, end: 20191114
  8. VELBE [Suspect]
     Active Substance: VINBLASTINE SULFATE
     Indication: HODGKIN^S DISEASE
     Dosage: UNK, (11.52 MG PER CURE)
     Route: 041
     Dates: start: 20190710, end: 20191024

REACTIONS (1)
  - Interstitial lung disease [Recovered/Resolved]

NARRATIVE: CASE EVENT DATE: 20191121
